FAERS Safety Report 10070281 (Version 1)
Quarter: 2014Q2

REPORT INFORMATION
  Report Type: Spontaneous
  Country: US (occurrence: None)
  Receive Date: 20140408
  Receipt Date: 20140408
  Transmission Date: 20141212
  Serious: Yes (Other)
  Sender: FDA-Public Use
  Company Number: 2269816

PATIENT
  Age: 41 Year
  Sex: Female
  Weight: 24.69 kg

DRUGS (1)
  1. PRECEDEX [Suspect]

REACTIONS (1)
  - Cellulitis [None]
